FAERS Safety Report 11239130 (Version 1)
Quarter: 2015Q3

REPORT INFORMATION
  Report Type: Spontaneous
  Country: US (occurrence: None)
  Receive Date: 20150701
  Receipt Date: 20150701
  Transmission Date: 20151125
  Serious: Yes (Hospitalization)
  Sender: FDA-Public Use
  Company Number: 2015ST000118

PATIENT
  Age: 60 Year
  Sex: Male
  Weight: 78 kg

DRUGS (8)
  1. SODIUM CHLORIDE. [Concomitant]
     Active Substance: SODIUM CHLORIDE
  2. STERILE WATER FOR INJ. (WATER FOR INJECTION) [Concomitant]
  3. SIMVASTATIN. [Concomitant]
     Active Substance: SIMVASTATIN
  4. RUCONEST [Suspect]
     Active Substance: HUMAN C1-ESTERASE INHIBITOR
     Indication: ENZYME LEVEL DECREASED
     Dosage: 4200 UNK, AS NEEDED, INTRAVENOUS
     Route: 042
     Dates: start: 2015
  5. ASPIRIN (ACETYLSALICYLIC ACID) [Concomitant]
     Active Substance: ASPIRIN
  6. EPIPEN [Concomitant]
     Active Substance: EPINEPHRINE
  7. MULTIVITAMINS (ASCORBIC ACID, ERGOCALCIFEROL, FOLIC ACID, NICOTINAMIDE, PANTHENOL, RETINOL, RIBOFLAVIN, THIAMINE HYDROCHLORIDE) [Concomitant]
     Active Substance: VITAMINS
  8. DANAZOL. [Concomitant]
     Active Substance: DANAZOL

REACTIONS (1)
  - Surgery [None]

NARRATIVE: CASE EVENT DATE: 20150615
